FAERS Safety Report 8764676 (Version 1)
Quarter: 2012Q4

REPORT INFORMATION
  Report Type: 
  Country: US (occurrence: US)
  Receive Date: 20120830
  Receipt Date: 20120830
  Transmission Date: 20130627
  Serious: Yes (Hospitalization)
  Sender: FDA-Public Use
  Company Number: US-ELI_LILLY_AND_COMPANY-US201208007265

PATIENT
  Age: 86 Year
  Sex: Female

DRUGS (10)
  1. EVISTA [Suspect]
     Indication: OSTEOPOROSIS
     Dosage: 60 mg, qd
     Route: 065
  2. AMITRIPTYLINE [Concomitant]
  3. AUGMENTIN                          /00852501/ [Concomitant]
  4. ASPIRIN [Concomitant]
  5. XANAX [Concomitant]
  6. CITRICAL [Concomitant]
  7. PAXIL [Concomitant]
  8. SYNTHROID [Concomitant]
  9. MUCINEX [Concomitant]
  10. PRAVASTATIN [Concomitant]

REACTIONS (1)
  - Oesophagitis [Unknown]
